FAERS Safety Report 4832436-9 (Version None)
Quarter: 2005Q4

REPORT INFORMATION
  Report Type: 
  Country: None (occurrence: None)
  Receive Date: 20051117
  Receipt Date: 20051108
  Transmission Date: 20060501
  Serious: Yes (Other)
  Sender: FDA-Public Use
  Company Number: USA030638494

PATIENT
  Age: 55 Year
  Sex: Female

DRUGS (6)
  1. FORTEO [Suspect]
     Indication: OSTEOPOROSIS
     Dosage: 20 UG DAY
     Dates: start: 20030101, end: 20040101
  2. FOSAMAX [Concomitant]
  3. GLUCOPHAGE [Concomitant]
  4. ALTACE [Concomitant]
  5. VICODIN [Concomitant]
  6. NEURONTIN [Concomitant]

REACTIONS (11)
  - BALANCE DISORDER [None]
  - BONE DENSITY DECREASED [None]
  - CONDITION AGGRAVATED [None]
  - FATIGUE [None]
  - MULTIPLE FRACTURES [None]
  - MUSCLE SPASMS [None]
  - OEDEMA PERIPHERAL [None]
  - PAIN [None]
  - PAIN IN EXTREMITY [None]
  - RIB FRACTURE [None]
  - SPINAL FRACTURE [None]
